FAERS Safety Report 16426441 (Version 1)
Quarter: 2019Q2

REPORT INFORMATION
  Report Type: Report from Study
  Country: US (occurrence: US)
  Receive Date: 20190613
  Receipt Date: 20190613
  Transmission Date: 20190711
  Serious: No
  Sender: FDA-Public Use
  Company Number: PHEH2019US024338

PATIENT
  Sex: Female

DRUGS (1)
  1. GILENYA [Suspect]
     Active Substance: FINGOLIMOD HYDROCHLORIDE
     Indication: MULTIPLE SCLEROSIS
     Dosage: 0.5 MG, QD
     Route: 048
     Dates: start: 201705

REACTIONS (9)
  - Animal attack [Unknown]
  - Hand fracture [Unknown]
  - Aphasia [Unknown]
  - Insomnia [Unknown]
  - Skin laceration [Unknown]
  - Anxiety [Unknown]
  - Contusion [Unknown]
  - Amnesia [Unknown]
  - Fatigue [Unknown]
